FAERS Safety Report 8761652 (Version 3)
Quarter: 2012Q4

REPORT INFORMATION
  Report Type: Spontaneous
  Country: JP (occurrence: None)
  Receive Date: 20120821
  Receipt Date: 20120914
  Transmission Date: 20130627
  Serious: Yes (Disabling)
  Sender: FDA-Public Use
  Company Number: LOC-01067

PATIENT
  Age: 44 Year
  Sex: Female

DRUGS (8)
  1. LOCOID [Suspect]
     Route: 061
     Dates: start: 199302, end: 199303
  2. LOCOID [Suspect]
  3. PINDERON [Suspect]
     Route: 061
  4. NERISONA [Suspect]
     Route: 061
  5. RINDERON-VG (BETAMETHASONE VALERATE, GENTAMICIN SULFATE) LOTION; REGIMEN #1 [Suspect]
     Route: 061
  6. MYSER (DIFLUPREDNATE) [Suspect]
     Route: 061
  7. PROPADERM [Suspect]
     Route: 061
  8. METHADERM (DEXAMETHASONE DIPROPIONATE) OINTMENT; REGIMEN #1 [Suspect]
     Route: 061

REACTIONS (3)
  - Glaucoma [None]
  - Cataract [None]
  - Visual impairment [None]
